FAERS Safety Report 13662506 (Version 2)
Quarter: 2017Q3

REPORT INFORMATION
  Report Type: Spontaneous
  Country: AR (occurrence: AR)
  Receive Date: 20170617
  Receipt Date: 20170718
  Transmission Date: 20171127
  Serious: Yes (Other)
  Sender: FDA-Public Use
  Company Number: AR-AMGEN-ARGSP2017091659

PATIENT
  Age: 70 Year
  Sex: Female

DRUGS (1)
  1. ENBREL [Suspect]
     Active Substance: ETANERCEPT
     Indication: RHEUMATOID ARTHRITIS
     Dosage: UNK
     Route: 065
     Dates: start: 20160115, end: 2017

REACTIONS (5)
  - Accident [Unknown]
  - Ligament sprain [Unknown]
  - Fall [Unknown]
  - Loss of consciousness [Unknown]
  - Amnesia [Unknown]

NARRATIVE: CASE EVENT DATE: 201702
